FAERS Safety Report 9222006 (Version 1)
Quarter: 2013Q2

REPORT INFORMATION
  Report Type: Spontaneous
  Country: US (occurrence: None)
  Receive Date: 20130408
  Receipt Date: 20130408
  Transmission Date: 20140414
  Serious: Yes (Hospitalization)
  Sender: FDA-Public Use
  Company Number: 1655310

PATIENT
  Sex: Female

DRUGS (1)
  1. NALBUPHINE HCL [Suspect]
     Indication: PRODUCT USED FOR UNKNOWN INDICATION

REACTIONS (3)
  - Oxygen saturation decreased [None]
  - Lung disorder [None]
  - Dyspnoea [None]
